FAERS Safety Report 4959589-6 (Version None)
Quarter: 2006Q1

REPORT INFORMATION
  Report Type: 
  Country: None (occurrence: None)
  Receive Date: 20060324
  Receipt Date: 20060315
  Transmission Date: 20060701
  Serious: Yes (Hospitalization)
  Sender: FDA-Public Use
  Company Number: 223103

PATIENT
  Age: 3 Year
  Sex: Female
  Weight: 21.4 kg

DRUGS (8)
  1. NUTROPIN AQ [Suspect]
     Indication: HYPOPITUITARISM
     Dosage: 0.4 MG,QD
     Dates: start: 20020704
  2. ANESTHESIA (ANESTHETIC) [Concomitant]
  3. DESMOPRESSIN (DESMOPRESSIN ACETATE) [Concomitant]
  4. PHENOBARB (PHENOBARBITAL) [Concomitant]
  5. DIAZOXIDE [Concomitant]
  6. DDAVP (DESMOPRESSIN ACETATE) [Concomitant]
  7. CORTEF [Concomitant]
  8. LEVOXYL [Concomitant]

REACTIONS (4)
  - CONVULSION [None]
  - HYPOGLYCAEMIA [None]
  - PROCEDURAL COMPLICATION [None]
  - TREATMENT NONCOMPLIANCE [None]
